FAERS Safety Report 9510470 (Version 2)
Quarter: 2013Q4

REPORT INFORMATION
  Report Type: Spontaneous
  Country: US (occurrence: US)
  Receive Date: 20130909
  Receipt Date: 20131225
  Transmission Date: 20140711
  Serious: Yes (Other)
  Sender: FDA-Public Use
  Company Number: US-009507513-1309USA003576

PATIENT
  Sex: Female
  Weight: 48.73 kg

DRUGS (20)
  1. MIRALAX [Suspect]
     Indication: PRODUCT USED FOR UNKNOWN INDICATION
     Dosage: 17 G, UNK
     Route: 048
  2. MIRALAX [Suspect]
     Indication: CONSTIPATION
  3. MIRALAX [Suspect]
     Indication: DIARRHOEA
  4. KEPPRA [Concomitant]
     Indication: PARTIAL SEIZURES
  5. PERCOCET [Concomitant]
     Indication: PAIN
  6. PHENERGAN (PROMETHAZINE HYDROCHLORIDE) [Concomitant]
     Indication: PAIN
     Dosage: UNK
  7. SOMA [Concomitant]
     Indication: OSTEOPOROSIS
  8. FENTANYL [Concomitant]
     Indication: FIBROMYALGIA
     Route: 062
  9. OXYGEN [Concomitant]
     Indication: CHRONIC OBSTRUCTIVE PULMONARY DISEASE
  10. PROAIR (ALBUTEROL SULFATE) [Concomitant]
     Indication: CHRONIC OBSTRUCTIVE PULMONARY DISEASE
     Route: 055
  11. DEPAKOTE [Concomitant]
     Indication: MIGRAINE
  12. TRAVATAN [Concomitant]
     Indication: GLAUCOMA
  13. NITRO [Concomitant]
     Indication: ANGINA PECTORIS
  14. AZOPT [Concomitant]
     Indication: GLAUCOMA
  15. VALIUM [Concomitant]
     Indication: TREMOR
  16. IMODIUM [Concomitant]
     Indication: DIARRHOEA
  17. LOMOTIL (LOPERAMIDE HYDROCHLORIDE) [Concomitant]
     Indication: DIARRHOEA
  18. XIFAXAN [Concomitant]
     Indication: IRRITABLE BOWEL SYNDROME
  19. PREVACID [Concomitant]
     Indication: GASTROOESOPHAGEAL REFLUX DISEASE
  20. CREON (PANCREATIN) [Concomitant]
     Indication: IRRITABLE BOWEL SYNDROME

REACTIONS (4)
  - Blindness [Not Recovered/Not Resolved]
  - Off label use [Unknown]
  - Inappropriate schedule of drug administration [Unknown]
  - Overdose [Unknown]
